FAERS Safety Report 19093674 (Version 1)
Quarter: 2021Q2

REPORT INFORMATION
  Report Type: Spontaneous
  Country: GB (occurrence: GB)
  Receive Date: 20210405
  Receipt Date: 20210405
  Transmission Date: 20210717
  Serious: Yes (Other)
  Sender: FDA-Public Use
  Company Number: GB-TAKEDA-2021TUS021486

PATIENT
  Age: 51 Year
  Sex: Female
  Weight: 52 kg

DRUGS (1)
  1. VORTIOXETINE. [Suspect]
     Active Substance: VORTIOXETINE
     Indication: DEPRESSION SUICIDAL
     Dosage: 15 MILLIGRAM
     Route: 048
     Dates: start: 20200331, end: 20210102

REACTIONS (2)
  - Adverse drug reaction [Recovered/Resolved]
  - Abdominal discomfort [Recovered/Resolved]

NARRATIVE: CASE EVENT DATE: 20200331
